FAERS Safety Report 5161325-8 (Version None)
Quarter: 2006Q4

REPORT INFORMATION
  Report Type: 
  Country: None (occurrence: None)
  Receive Date: 20061121
  Receipt Date: 20061107
  Transmission Date: 20070319
  Serious: Yes (Hospitalization)
  Sender: FDA-Public Use
  Company Number: 2006138186

PATIENT
  Sex: Male

DRUGS (2)
  1. LYRICA [Suspect]
     Indication: ARTHRALGIA
  2. LORAZEPAM [Suspect]

REACTIONS (2)
  - DRUG WITHDRAWAL SYNDROME [None]
  - HEPATITIS [None]
